FAERS Safety Report 4598658-X (Version None)
Quarter: 2005Q1

REPORT INFORMATION
  Report Type: 
  Country: None (occurrence: None)
  Receive Date: 20050304
  Receipt Date: 20050301
  Transmission Date: 20050727
  Serious: Yes (Hospitalization)
  Sender: FDA-Public Use
  Company Number: NL-MERCK-0503NLD00001

PATIENT
  Age: 46 Year
  Sex: Female

DRUGS (2)
  1. VIOXX [Suspect]
     Indication: BACK PAIN
     Route: 048
     Dates: start: 20010103, end: 20040401
  2. TRAMADOL HYDROCHLORIDE [Concomitant]
     Route: 048
     Dates: start: 20030503

REACTIONS (1)
  - ARTERIOSCLEROSIS [None]
